FAERS Safety Report 7578013-0 (Version None)
Quarter: 2011Q2

REPORT INFORMATION
  Report Type: 
  Country: None (occurrence: None)
  Receive Date: 20110628
  Receipt Date: 20110615
  Transmission Date: 20111010
  Serious: Yes (Other)
  Sender: FDA-Public Use
  Company Number: US-ROCHE-785497

PATIENT

DRUGS (2)
  1. ERBITUX [Suspect]
     Indication: COLON CANCER
     Route: 065
  2. AVASTIN [Suspect]
     Indication: COLON CANCER
     Route: 065

REACTIONS (1)
  - COLON CANCER [None]
